FAERS Safety Report 23485554 (Version 1)
Quarter: 2024Q1

REPORT INFORMATION
  Report Type: Spontaneous
  Country: US (occurrence: US)
  Receive Date: 20240206
  Receipt Date: 20240206
  Transmission Date: 20240409
  Serious: No
  Sender: FDA-Public Use
  Company Number: US-SA-SAC20240201000290

PATIENT
  Age: 15 Year
  Sex: Male

DRUGS (1)
  1. DUPIXENT [Suspect]
     Active Substance: DUPILUMAB
     Indication: Eosinophilic oesophagitis
     Dosage: 300 MG, QW
     Route: 058
     Dates: end: 202310

REACTIONS (8)
  - Infectious mononucleosis [Recovering/Resolving]
  - Illness [Recovering/Resolving]
  - Dysphagia [Recovering/Resolving]
  - Pain [Recovering/Resolving]
  - Tonsillar inflammation [Recovering/Resolving]
  - Respiratory tract congestion [Recovering/Resolving]
  - Pharyngeal erythema [Recovering/Resolving]
  - Oropharyngeal pain [Recovering/Resolving]
